FAERS Safety Report 5091381-7 (Version None)
Quarter: 2006Q3

REPORT INFORMATION
  Report Type: 
  Country: None (occurrence: None)
  Receive Date: 20060727
  Receipt Date: 20060411
  Transmission Date: 20061208
  Serious: Yes (Other)
  Sender: FDA-Public Use
  Company Number: 2006051710

PATIENT
  Age: 60 Year
  Sex: Female

DRUGS (2)
  1. LYRICA [Suspect]
     Indication: ILL-DEFINED DISORDER
     Dosage: 150 MG (50 MG,3 IN 1 D)
  2. CIPROFLOXACIN [Suspect]
     Indication: ILL-DEFINED DISORDER

REACTIONS (1)
  - BLISTER [None]
